FAERS Safety Report 23251066 (Version 1)
Quarter: 2023Q4

REPORT INFORMATION
  Report Type: Spontaneous
  Country: KR (occurrence: KR)
  Receive Date: 20231201
  Receipt Date: 20231201
  Transmission Date: 20240110
  Serious: Yes (Other)
  Sender: FDA-Public Use
  Company Number: KR-009507513-2311KOR009754

PATIENT
  Age: 49 Year
  Sex: Female
  Weight: 43 kg

DRUGS (19)
  1. PEMBROLIZUMAB [Suspect]
     Active Substance: PEMBROLIZUMAB
     Indication: Renal cell carcinoma
     Dosage: TOTAL DAILY DOSE 200 MILLIGRAM
     Route: 042
     Dates: start: 20220427
  2. PEMBROLIZUMAB [Suspect]
     Active Substance: PEMBROLIZUMAB
     Dosage: TOTAL DAILY DOSE 200 MILLIGRAM
     Route: 042
     Dates: start: 20220519
  3. PEMBROLIZUMAB [Suspect]
     Active Substance: PEMBROLIZUMAB
     Dosage: TOTAL DAILY DOSE 200 MILLIGRAM
     Route: 042
     Dates: start: 20220608
  4. PEMBROLIZUMAB [Suspect]
     Active Substance: PEMBROLIZUMAB
     Dosage: TOTAL DAILY DOSE 200 MILLIGRAM
     Route: 042
     Dates: start: 20220630
  5. PEMBROLIZUMAB [Suspect]
     Active Substance: PEMBROLIZUMAB
     Dosage: TOTAL DAILY DOSE 200 MILLIGRAM
     Route: 042
     Dates: start: 20220720
  6. PEMBROLIZUMAB [Suspect]
     Active Substance: PEMBROLIZUMAB
     Dosage: TOTAL DAILY DOSE 200 MILLIGRAM
     Route: 042
     Dates: start: 20220830
  7. PEMBROLIZUMAB [Suspect]
     Active Substance: PEMBROLIZUMAB
     Dosage: TOTAL DAILY DOSE 200 MILLIGRAM
     Route: 042
     Dates: start: 20220920
  8. PEMBROLIZUMAB [Suspect]
     Active Substance: PEMBROLIZUMAB
     Dosage: TOTAL DAILY DOSE 200 MILLIGRAM
     Route: 042
     Dates: start: 20221012
  9. PEMBROLIZUMAB [Suspect]
     Active Substance: PEMBROLIZUMAB
     Dosage: TOTAL DAILY DOSE 200 MILLIGRAM
     Route: 042
     Dates: start: 20221102
  10. PEMBROLIZUMAB [Suspect]
     Active Substance: PEMBROLIZUMAB
     Dosage: TOTAL DAILY DOSE 200 MILLIGRAM
     Route: 042
     Dates: start: 20221123
  11. PEMBROLIZUMAB [Suspect]
     Active Substance: PEMBROLIZUMAB
     Dosage: TOTAL DAILY DOSE 200 MILLIGRAM
     Route: 042
     Dates: start: 20221216, end: 20221216
  12. PEMBROLIZUMAB [Suspect]
     Active Substance: PEMBROLIZUMAB
     Dosage: TOTAL DAILY DOSE 200 MILLIGRAM
     Route: 042
     Dates: start: 20220203, end: 20220203
  13. PEMBROLIZUMAB [Suspect]
     Active Substance: PEMBROLIZUMAB
     Dosage: TOTAL DAILY DOSE 200 MILLIGRAM
     Route: 042
     Dates: start: 20220421, end: 20220421
  14. PEMBROLIZUMAB [Suspect]
     Active Substance: PEMBROLIZUMAB
     Dosage: TOTAL DAILY DOSE 200 MILLIGRAM
     Route: 042
     Dates: start: 20220623
  15. LENVATINIB MESYLATE [Suspect]
     Active Substance: LENVATINIB MESYLATE
     Indication: Renal cell carcinoma
     Dosage: TOTAL DAILY DOSE 20 MILLIGRAM
     Route: 048
     Dates: start: 20220427, end: 20220518
  16. LENVATINIB MESYLATE [Suspect]
     Active Substance: LENVATINIB MESYLATE
     Dosage: TOTAL DAILY DOSE 14 MILLIGRAM
     Route: 048
     Dates: start: 20220519, end: 20220531
  17. LENVATINIB MESYLATE [Suspect]
     Active Substance: LENVATINIB MESYLATE
     Dosage: TOTAL DAILY DOSE 14 MILLIGRAM
     Route: 048
     Dates: start: 20220604, end: 20220629
  18. LENVATINIB MESYLATE [Suspect]
     Active Substance: LENVATINIB MESYLATE
     Dosage: TOTAL DAILY DOSE 10 MILLIGRAM
     Route: 048
     Dates: start: 20220701, end: 20221215
  19. LENVATINIB MESYLATE [Suspect]
     Active Substance: LENVATINIB MESYLATE
     Dosage: TOTAL DAILY DOSE 8 MILLIGRAM
     Route: 048
     Dates: start: 20230112, end: 20230707

REACTIONS (13)
  - Cardiac failure [Recovering/Resolving]
  - Xerophthalmia [Recovering/Resolving]
  - Product use issue [Unknown]
  - Product use issue [Unknown]
  - Product use issue [Unknown]
  - Product use issue [Unknown]
  - Inappropriate schedule of product administration [Unknown]
  - Inappropriate schedule of product administration [Unknown]
  - Inappropriate schedule of product administration [Unknown]
  - Inappropriate schedule of product administration [Unknown]
  - Inappropriate schedule of product administration [Unknown]
  - Inappropriate schedule of product administration [Unknown]
  - Inappropriate schedule of product administration [Unknown]

NARRATIVE: CASE EVENT DATE: 20220519
